FAERS Safety Report 8327686-3 (Version None)
Quarter: 2012Q2

REPORT INFORMATION
  Report Type: 
  Country: None (occurrence: None)
  Receive Date: 20120502
  Receipt Date: 20120427
  Transmission Date: 20120825
  Serious: No
  Sender: FDA-Public Use
  Company Number: US-PFIZER INC-2012105325

PATIENT
  Sex: Female
  Weight: 70.295 kg

DRUGS (3)
  1. GABAPENTIN [Suspect]
     Indication: SCIATICA
     Dosage: 600 MG, 3X/DAY
     Dates: start: 20110101
  2. CELEBREX [Concomitant]
     Indication: ARTHRITIS
     Dosage: 200 MG, 1X/DAY
  3. TRIAMTERENE [Concomitant]
     Indication: HYPERTENSION
     Dosage: 75/50 MG

REACTIONS (2)
  - CONSTIPATION [None]
  - VISION BLURRED [None]
